FAERS Safety Report 6550156-X (Version None)
Quarter: 2010Q1

REPORT INFORMATION
  Report Type: 
  Country: None (occurrence: None)
  Receive Date: 20100125
  Receipt Date: 20100115
  Transmission Date: 20100710
  Serious: Yes (Hospitalization)
  Sender: FDA-Public Use
  Company Number: US-MERCK-1001USA00080

PATIENT
  Age: 60 Year
  Sex: Male

DRUGS (12)
  1. PRIMAXIN [Suspect]
     Indication: PNEUMONIA BACTERIAL
     Route: 051
     Dates: start: 20091231, end: 20100104
  2. PRIMAXIN [Suspect]
     Route: 051
     Dates: start: 20091231, end: 20100104
  3. SOLU-MEDROL [Concomitant]
     Route: 042
  4. DEPAKOTE [Concomitant]
     Route: 048
  5. OS-CAL D [Concomitant]
     Route: 048
  6. SENOKOT [Concomitant]
     Route: 048
  7. MIRALAX [Concomitant]
     Route: 048
  8. PRILOSEC [Concomitant]
     Route: 048
  9. ALBUTEROL SULFATE [Concomitant]
     Route: 065
  10. PULMICORT [Concomitant]
     Route: 065
  11. TYLENOL [Concomitant]
     Route: 065
  12. SODIUM CHLORIDE [Concomitant]
     Route: 042

REACTIONS (2)
  - INJECTION SITE OEDEMA [None]
  - INJECTION SITE VESICLES [None]
